FAERS Safety Report 11827853 (Version 1)
Quarter: 2015Q4

REPORT INFORMATION
  Report Type: Spontaneous
  Country: US (occurrence: US)
  Receive Date: 20151211
  Receipt Date: 20151211
  Transmission Date: 20160305
  Serious: No
  Sender: FDA-Public Use
  Company Number: US-BAUSCH-BL-2015-000885

PATIENT

DRUGS (1)
  1. XENAZINE [Suspect]
     Active Substance: TETRABENAZINE
     Indication: HUNTINGTON^S DISEASE
     Route: 048
     Dates: start: 201410, end: 201412

REACTIONS (5)
  - Memory impairment [Unknown]
  - Adverse event [Unknown]
  - Tongue disorder [Unknown]
  - Tremor [Unknown]
  - Muscle twitching [Unknown]
